FAERS Safety Report 8536597-X (Version None)
Quarter: 2012Q3

REPORT INFORMATION
  Report Type: 
  Country: None (occurrence: None)
  Receive Date: 20120718
  Receipt Date: 20120718
  Transmission Date: 20120928
  Serious: Yes (Other)
  Sender: FDA-Public Use
  Company Number: None

PATIENT

DRUGS (6)
  1. LEVOCETIRIZ [Concomitant]
  2. TIZANIDINE HYDROCHLORIDE [Concomitant]
  3. SUMATRIPTAN [Suspect]
     Indication: HEADACHE
     Dosage: 25 MG AS NEEDED PO
     Route: 048
  4. TORSEMIDE [Concomitant]
  5. MELOXICAM [Concomitant]
  6. BACTRIM [Concomitant]

REACTIONS (1)
  - CONVULSION [None]
